FAERS Safety Report 5119351-0 (Version None)
Quarter: 2006Q4

REPORT INFORMATION
  Report Type: 
  Country: None (occurrence: None)
  Receive Date: 20061003
  Receipt Date: 20060623
  Transmission Date: 20070319
  Serious: Yes (Hospitalization)
  Sender: FDA-Public Use
  Company Number: FRWYE771623JUN06

PATIENT
  Sex: Female
  Weight: 95 kg

DRUGS (13)
  1. ENBREL [Suspect]
     Indication: RHEUMATOID ARTHRITIS
     Route: 058
     Dates: start: 20050303, end: 20060620
  2. METHOTREXATE [Suspect]
     Indication: RHEUMATOID ARTHRITIS
     Dosage: 15 MG TOTAL WEEKLY
     Route: 048
     Dates: start: 19950101, end: 20050301
  3. METHOTREXATE [Suspect]
     Dosage: 10 MG TOTAL WEEKLY
     Route: 048
     Dates: start: 20050301
  4. ACTONEL [Concomitant]
     Indication: OSTEOPOROSIS PROPHYLAXIS
     Route: 048
     Dates: start: 19950101
  5. CODOLIPRANE [Concomitant]
     Indication: PAIN
     Dosage: 5 TABLETS TOTAL DAILY IN CASE OF PAIN
     Route: 048
     Dates: start: 19950101
  6. CORTANCYL [Concomitant]
     Indication: RHEUMATOID ARTHRITIS
     Dosage: 7 MG TOTAL DAILY
     Route: 048
     Dates: start: 19950101, end: 20041201
  7. CORTANCYL [Concomitant]
     Dosage: 10 MG TOTAL DAILY
     Route: 048
     Dates: start: 20041201, end: 20050301
  8. CORTANCYL [Concomitant]
     Dosage: DOSAGE TAPERED BY 1 MG MONTHLY
     Route: 048
     Dates: start: 20050301
  9. CACIT [Concomitant]
     Indication: OSTEOPOROSIS PROPHYLAXIS
     Dosage: 1000 MG/880 IU DAILY
     Route: 048
     Dates: start: 19950101
  10. COLECALCIFEROL [Concomitant]
     Indication: OSTEOPOROSIS PROPHYLAXIS
     Dosage: 1000 MG/880 IU DAILY
     Route: 048
     Dates: start: 19950101
  11. OMEPRAZOLE [Concomitant]
     Route: 048
     Dates: start: 19930101
  12. SPECIAFOLDINE [Concomitant]
     Dosage: 6 TABLETS TOTAL WEEKLY
     Route: 048
     Dates: start: 19950101
  13. SPECIAFOLDINE [Concomitant]
     Dosage: 2 TABLETS TOTAL WEEKLY
     Route: 048

REACTIONS (4)
  - BREAST CANCER [None]
  - BREAST CANCER STAGE II [None]
  - OESTROGEN RECEPTOR ASSAY POSITIVE [None]
  - PROGESTERONE RECEPTOR ASSAY POSITIVE [None]
